FAERS Safety Report 6527951-6 (Version None)
Quarter: 2010Q1

REPORT INFORMATION
  Report Type: 
  Country: None (occurrence: None)
  Receive Date: 20100105
  Receipt Date: 20100105
  Transmission Date: 20100710
  Serious: Yes (Death)
  Sender: FDA-Public Use
  Company Number: None

PATIENT
  Age: 33 Year
  Sex: Female
  Weight: 45.3597 kg

DRUGS (1)
  1. BENADRYL [Suspect]
     Indication: ALLERGENIC DESENSITISATION PROCEDURE
     Dosage: IV
     Route: 042
     Dates: start: 20090701, end: 20090731

REACTIONS (3)
  - BRONCHIAL SECRETION RETENTION [None]
  - DYSPNOEA [None]
  - LUNG DISORDER [None]
